FAERS Safety Report 5720843-1 (Version None)
Quarter: 2008Q2

REPORT INFORMATION
  Report Type: 
  Country: None (occurrence: None)
  Receive Date: 20080425
  Receipt Date: 20080425
  Transmission Date: 20081010
  Serious: Yes (Other)
  Sender: FDA-Public Use
  Company Number: None

PATIENT
  Age: 19 Year
  Sex: Female
  Weight: 44.4525 kg

DRUGS (1)
  1. YAZ [Suspect]
     Dosage: 1 PILL EVERY DAY PO
     Route: 048
     Dates: start: 20060825, end: 20070625

REACTIONS (6)
  - APPETITE DISORDER [None]
  - HUNGER [None]
  - PAIN IN EXTREMITY [None]
  - PALPITATIONS [None]
  - VENTRICULAR EXTRASYSTOLES [None]
  - WEIGHT INCREASED [None]
